FAERS Safety Report 22271502 (Version 1)
Quarter: 2023Q2

REPORT INFORMATION
  Report Type: Spontaneous
  Country: CN (occurrence: CN)
  Receive Date: 20230501
  Receipt Date: 20230501
  Transmission Date: 20230721
  Serious: Yes (Death, Life-Threatening, Other)
  Sender: FDA-Public Use
  Company Number: CN-AMGEN-CHNSP2023070960

PATIENT

DRUGS (4)
  1. FILGRASTIM [Suspect]
     Active Substance: FILGRASTIM
     Indication: Prophylaxis
     Dosage: 150 MICROGRAM/SQ. METER, Q12H
     Route: 065
  2. DECITABINE [Concomitant]
     Active Substance: DECITABINE
     Dosage: 10 MILLIGRAM, QD
     Route: 065
  3. CYTARABINE [Concomitant]
     Active Substance: CYTARABINE
     Dosage: 15 MILLIGRAM/SQ. METER, Q12H
     Route: 065
  4. ACLARUBICIN [Concomitant]
     Active Substance: ACLARUBICIN
     Dosage: 20 MILLIGRAM, QOD
     Route: 065

REACTIONS (13)
  - Death [Fatal]
  - Myelodysplastic syndrome [Fatal]
  - Acute myeloid leukaemia [Fatal]
  - Myelosuppression [Unknown]
  - Infection [Unknown]
  - Pneumonia [Unknown]
  - Oral infection [Unknown]
  - Bacteraemia [Unknown]
  - Anal abscess [Unknown]
  - Gastrointestinal disorder [Unknown]
  - Urinary tract infection [Unknown]
  - Upper respiratory tract infection [Unknown]
  - Transaminases increased [Unknown]
